FAERS Safety Report 16403694 (Version 1)
Quarter: 2019Q2

REPORT INFORMATION
  Report Type: Spontaneous
  Country: US (occurrence: US)
  Receive Date: 20190607
  Receipt Date: 20190607
  Transmission Date: 20190711
  Serious: No
  Sender: FDA-Public Use
  Company Number: US-AJANTA PHARMA USA INC.-2067906

PATIENT
  Age: 5 Year
  Sex: Male

DRUGS (2)
  1. CLONIDINE (ANDA 209686) [Suspect]
     Active Substance: CLONIDINE
     Indication: ATTENTION DEFICIT/HYPERACTIVITY DISORDER
     Dates: start: 20190307
  2. COTEMPLA XR-ODT [Concomitant]
     Active Substance: METHYLPHENIDATE

REACTIONS (7)
  - Loss of consciousness [Recovered/Resolved]
  - Speech disorder [Unknown]
  - Feeling abnormal [Unknown]
  - Sedation [Recovered/Resolved]
  - Lethargy [Unknown]
  - Dizziness [Unknown]
  - Product substitution issue [Not Recovered/Not Resolved]

NARRATIVE: CASE EVENT DATE: 20190307
